FAERS Safety Report 11163982 (Version 1)
Quarter: 2015Q2

REPORT INFORMATION
  Report Type: Report from Study
  Country: US (occurrence: US)
  Receive Date: 20150604
  Receipt Date: 20150604
  Transmission Date: 20150821
  Serious: Yes (Death, Hospitalization, Other)
  Sender: FDA-Public Use
  Company Number: US-ROCHE-1586486

PATIENT

DRUGS (6)
  1. IBRUTINIB [Suspect]
     Active Substance: IBRUTINIB
     Indication: CHRONIC LYMPHOCYTIC LEUKAEMIA
     Dosage: REPEATED EVERY 28 DAYS
     Route: 048
  2. RITUXIMAB [Suspect]
     Active Substance: RITUXIMAB
     Indication: CHRONIC LYMPHOCYTIC LEUKAEMIA
     Dosage: 375 MG/M2 ON DAY 1; FOR CYCLE 1 ONLY, REPEATED EVERY 28 DAYS
     Route: 042
  3. BENDAMUSTINE [Suspect]
     Active Substance: BENDAMUSTINE
     Indication: LYMPHOCYTIC LYMPHOMA
  4. RITUXIMAB [Suspect]
     Active Substance: RITUXIMAB
     Indication: LYMPHOCYTIC LYMPHOMA
     Dosage: SUBSEQUENT CYCLES ON DAY 1
     Route: 042
  5. IBRUTINIB [Suspect]
     Active Substance: IBRUTINIB
     Indication: LYMPHOCYTIC LYMPHOMA
  6. BENDAMUSTINE [Suspect]
     Active Substance: BENDAMUSTINE
     Indication: CHRONIC LYMPHOCYTIC LEUKAEMIA
     Dosage: ON DAYS 1 AND 2 OF EACH CYCLE, REPEATED EVERY 28 DAYS
     Route: 042

REACTIONS (35)
  - Cardiac failure congestive [Unknown]
  - Renal pain [Unknown]
  - Tumour lysis syndrome [Unknown]
  - Urinary tract infection [Unknown]
  - Lung neoplasm malignant [Unknown]
  - Rash maculo-papular [Unknown]
  - Skin cancer [Unknown]
  - Pruritus [Unknown]
  - Febrile neutropenia [Unknown]
  - Squamous cell carcinoma [Unknown]
  - Leukopenia [Unknown]
  - Gastrointestinal haemorrhage [Recovered/Resolved]
  - Herpes zoster [Unknown]
  - Rash pruritic [Unknown]
  - Thyroid neoplasm [Unknown]
  - Thrombocytopenia [Unknown]
  - Vomiting [Unknown]
  - Cellulitis [Unknown]
  - Syncope [Unknown]
  - Ovarian cancer metastatic [Fatal]
  - Neutropenia [Unknown]
  - Fatigue [Unknown]
  - Sinusitis [Unknown]
  - Hyperuricaemia [Unknown]
  - Large intestinal obstruction [Unknown]
  - Osteoarthritis [Unknown]
  - Sepsis [Fatal]
  - Upper respiratory tract infection [Unknown]
  - Dehydration [Unknown]
  - Ovarian cancer [Unknown]
  - Transient ischaemic attack [Unknown]
  - Diarrhoea [Unknown]
  - Arthralgia [Unknown]
  - Oedema [Unknown]
  - Urinary retention [Unknown]
